FAERS Safety Report 24714083 (Version 1)
Quarter: 2024Q4

REPORT INFORMATION
  Report Type: Spontaneous
  Country: US (occurrence: US)
  Receive Date: 20241209
  Receipt Date: 20241209
  Transmission Date: 20250114
  Serious: No
  Sender: REGENERON
  Company Number: US-REGENERON PHARMACEUTICALS, INC.-2024-117526

PATIENT
  Sex: Female

DRUGS (1)
  1. EYLEA [Suspect]
     Active Substance: AFLIBERCEPT
     Indication: Diabetic retinal oedema
     Dosage: UNK, BOTH EYES, FORMULATION: UNKNOWN
     Dates: start: 2016

REACTIONS (2)
  - Eye disorder [Recovered/Resolved]
  - Vitreous floaters [Unknown]

NARRATIVE: CASE EVENT DATE: 20220101
